FAERS Safety Report 6684442-X (Version None)
Quarter: 2010Q2

REPORT INFORMATION
  Report Type: 
  Country: None (occurrence: None)
  Receive Date: 20100416
  Receipt Date: 20100408
  Transmission Date: 20101027
  Serious: Yes (Hospitalization)
  Sender: FDA-Public Use
  Company Number: GXKR2010GB04004

PATIENT
  Age: 65 Year
  Sex: Female

DRUGS (1)
  1. INDOMETHACIN (NGX) [Suspect]
     Indication: BACK PAIN
     Dosage: 1 DF, BID
     Route: 065

REACTIONS (1)
  - SPINAL CORD HAEMORRHAGE [None]
